FAERS Safety Report 6738963-1 (Version None)
Quarter: 2010Q2

REPORT INFORMATION
  Report Type: 
  Country: None (occurrence: None)
  Receive Date: 20100521
  Receipt Date: 20100511
  Transmission Date: 20101027
  Serious: Yes (Other)
  Sender: FDA-Public Use
  Company Number: ALA_00470_2010

PATIENT
  Sex: Female

DRUGS (1)
  1. REGLAN [Suspect]
     Indication: PREOPERATIVE CARE
     Dosage: (DF)

REACTIONS (3)
  - BRONCHOSPASM [None]
  - DRUG EXPOSURE DURING PREGNANCY [None]
  - SWELLING [None]
